FAERS Safety Report 14924846 (Version 1)
Quarter: 2018Q2

REPORT INFORMATION
  Report Type: Spontaneous
  Country: US (occurrence: US)
  Receive Date: 20180522
  Receipt Date: 20180522
  Transmission Date: 20180711
  Serious: No
  Sender: FDA-Public Use
  Company Number: US-MEDIMETRIKS-2017-US-014540

PATIENT
  Age: 52 Year
  Sex: Female
  Weight: 90.72 kg

DRUGS (7)
  1. VITAMIN C [Concomitant]
     Active Substance: ASCORBIC ACID
  2. GLUCOSAMINE/CHONDROINTIN COMPLEX [Concomitant]
  3. UNSPECIFIED DIURETIC [Concomitant]
     Active Substance: UNSPECIFIED INGREDIENT
  4. SYNALAR [Suspect]
     Active Substance: FLUOCINOLONE ACETONIDE
     Indication: PSORIASIS
     Dosage: ONCE PER DAY EVERY EVENING ON THE SCALP
     Route: 061
     Dates: start: 201711, end: 201712
  5. EVENING PRIMROSE [Concomitant]
  6. FISH OIL [Concomitant]
     Active Substance: FISH OIL
  7. MULTIVITAMIN [Concomitant]
     Active Substance: VITAMINS

REACTIONS (1)
  - Drug ineffective [Unknown]

NARRATIVE: CASE EVENT DATE: 201711
